FAERS Safety Report 18571149 (Version 1)
Quarter: 2020Q4

REPORT INFORMATION
  Report Type: Spontaneous
  Country: US (occurrence: US)
  Receive Date: 20201202
  Receipt Date: 20201202
  Transmission Date: 20210114
  Serious: Yes (Hospitalization, Other)
  Sender: FDA-Public Use
  Company Number: US-PURDUE-USA-2020-0178039

PATIENT
  Sex: Female

DRUGS (3)
  1. OXYCODONE HYDROCHLORIDE (SIMILAR TO NDA 22-272) [Suspect]
     Active Substance: OXYCODONE HYDROCHLORIDE
     Indication: PAIN
     Dosage: UNKNOWN
     Route: 048
     Dates: start: 200502
  2. FENTANYL CITRATE. [Suspect]
     Active Substance: FENTANYL CITRATE
     Dosage: UNKNOWN
     Route: 065
     Dates: start: 200502
  3. XANAX [Suspect]
     Active Substance: ALPRAZOLAM
     Indication: PAIN
     Dosage: UNKNOWN
     Route: 065
     Dates: start: 200502

REACTIONS (9)
  - Diplegia [Unknown]
  - Drug dependence [Unknown]
  - Vomiting [Unknown]
  - Kidney infection [Unknown]
  - Headache [Unknown]
  - Seizure [Unknown]
  - Rhabdomyolysis [Unknown]
  - Acute kidney injury [Unknown]
  - Osteonecrosis [Unknown]

NARRATIVE: CASE EVENT DATE: 200507
